FAERS Safety Report 22212733 (Version 1)
Quarter: 2023Q2

REPORT INFORMATION
  Report Type: Spontaneous
  Country: JP (occurrence: None)
  Receive Date: 20230414
  Receipt Date: 20230414
  Transmission Date: 20230721
  Serious: Yes (Hospitalization, Other)
  Sender: FDA-Public Use
  Company Number: 2023A083932

PATIENT
  Age: 54 Year
  Sex: Female

DRUGS (3)
  1. IMFINZI [Suspect]
     Active Substance: DURVALUMAB
     Indication: Small cell lung cancer
     Dosage: DOSE UNKNOWN,EVERY THREE WEEKS
     Route: 041
  2. CARBOPLATIN [Concomitant]
     Active Substance: CARBOPLATIN
     Indication: Small cell lung cancer
     Dosage: DOSE UNKNOWN, EVERY 3RD DAY
  3. ETOPOSIDE [Concomitant]
     Active Substance: ETOPOSIDE
     Indication: Small cell lung cancer
     Dosage: DOSE UNKNOWN, FIRST, SECOND, AND THIRD DAY OF EACH COURSE

REACTIONS (3)
  - Decreased appetite [Recovering/Resolving]
  - Stiff person syndrome [Unknown]
  - Pyrexia [Recovering/Resolving]
